FAERS Safety Report 8301692-7 (Version None)
Quarter: 2012Q2

REPORT INFORMATION
  Report Type: 
  Country: None (occurrence: None)
  Receive Date: 20120420
  Receipt Date: 20120419
  Transmission Date: 20120825
  Serious: No
  Sender: FDA-Public Use
  Company Number: US-B.I. PHARMACEUTICALS,INC./RIDGEFIELD-2012-BP-07476BP

PATIENT
  Sex: Female

DRUGS (2)
  1. CHOLESTEROL DRUG [Suspect]
  2. PRADAXA [Suspect]
     Dosage: 300 MG
     Route: 048

REACTIONS (2)
  - MYALGIA [None]
  - ARTHRALGIA [None]
